FAERS Safety Report 7792449-4 (Version None)
Quarter: 2011Q4

REPORT INFORMATION
  Report Type: 
  Country: None (occurrence: None)
  Receive Date: 20111003
  Receipt Date: 20111002
  Transmission Date: 20120403
  Serious: No
  Sender: FDA-Public Use
  Company Number: US-PFIZER INC-2011234654

PATIENT
  Sex: Male
  Weight: 81.2 kg

DRUGS (3)
  1. CHANTIX [Suspect]
     Indication: SMOKING CESSATION THERAPY
     Dosage: 0.5 MG, 1X/DAY
     Route: 048
     Dates: start: 20110924
  2. GLIMEPIRIDE [Concomitant]
     Dosage: UNK
  3. CYMBALTA [Concomitant]
     Dosage: UNK

REACTIONS (5)
  - ABDOMINAL DISCOMFORT [None]
  - VOMITING [None]
  - ABNORMAL DREAMS [None]
  - NAUSEA [None]
  - INSOMNIA [None]
